FAERS Safety Report 10273763 (Version 1)
Quarter: 2014Q3

REPORT INFORMATION
  Report Type: Spontaneous
  Country: CH (occurrence: CH)
  Receive Date: 20140702
  Receipt Date: 20140702
  Transmission Date: 20150326
  Serious: Yes (Hospitalization)
  Sender: FDA-Public Use
  Company Number: CH-SA-2014SA082957

PATIENT
  Age: 88 Year
  Sex: Female

DRUGS (6)
  1. NEPHROTRANS [Concomitant]
     Indication: RENAL FAILURE CHRONIC
     Route: 048
  2. LASIX [Suspect]
     Active Substance: FUROSEMIDE
     Indication: HYPERTENSIVE CARDIOMYOPATHY
     Route: 048
     Dates: end: 201405
  3. AMLODIPINE [Concomitant]
     Active Substance: AMLODIPINE BESYLATE
     Indication: HYPERTENSIVE CARDIOMYOPATHY
     Dosage: ALF PER DAY
     Route: 048
  4. ASPIRIN CARDIO [Suspect]
     Active Substance: ASPIRIN
     Indication: ESSENTIAL THROMBOCYTHAEMIA
     Route: 048
     Dates: end: 201405
  5. NASONEX [Concomitant]
     Active Substance: MOMETASONE FUROATE
     Route: 045
  6. SYMBICORT [Concomitant]
     Active Substance: BUDESONIDE\FORMOTEROL FUMARATE DIHYDRATE
     Indication: BRONCHIECTASIS
     Dosage: POWDER
     Route: 055

REACTIONS (6)
  - Renal failure acute [Recovering/Resolving]
  - Arthralgia [Recovering/Resolving]
  - Oedema peripheral [Not Recovered/Not Resolved]
  - Hypersensitivity vasculitis [Not Recovered/Not Resolved]
  - Glomerulonephritis acute [Unknown]
  - Purpura [Not Recovered/Not Resolved]

NARRATIVE: CASE EVENT DATE: 201404
